FAERS Safety Report 14001836 (Version 1)
Quarter: 2017Q3

REPORT INFORMATION
  Report Type: Report from Study
  Country: US (occurrence: BR)
  Receive Date: 20170922
  Receipt Date: 20170922
  Transmission Date: 20171128
  Serious: Yes (Hospitalization, Other)
  Sender: FDA-Public Use
  Company Number: US-SUNOVION-2017SUN004129

PATIENT
  Sex: Male
  Weight: 60 kg

DRUGS (1)
  1. INDACATEROL AND GLYCOPYRROLATE [Suspect]
     Active Substance: GLYCOPYRROLATE\INDACATEROL MALEATE
     Indication: EMPHYSEMA
     Dosage: 1 DF, QD (50/110 UG)
     Route: 055
     Dates: start: 20170728

REACTIONS (5)
  - Insomnia [Unknown]
  - Pneumonia [Recovering/Resolving]
  - Gait inability [Unknown]
  - Memory impairment [Unknown]
  - Pneumonitis [Unknown]
